FAERS Safety Report 18145227 (Version 3)
Quarter: 2021Q2

REPORT INFORMATION
  Report Type: Spontaneous
  Country: US (occurrence: US)
  Receive Date: 20200813
  Receipt Date: 20210629
  Transmission Date: 20210717
  Serious: No
  Sender: FDA-Public Use
  Company Number: US-PFIZER INC-2020037643

PATIENT
  Age: 40 Year
  Sex: Female
  Weight: 61.23 kg

DRUGS (2)
  1. LYRICA [Suspect]
     Active Substance: PREGABALIN
     Dosage: 75 MG, 2X/DAY (TAKE 2 CAPS A DAY FOR 90 DAYS)
  2. LYRICA [Suspect]
     Active Substance: PREGABALIN
     Indication: FIBROMYALGIA
     Dosage: 200 MG, 1X/DAY (2 CAP ORAL EVERY DAY AT BEDTIME)/(100 MG. TWO CAPSULE AT NIGHT BY MOUTH)
     Route: 048
     Dates: start: 2008

REACTIONS (2)
  - Vertigo [Unknown]
  - Spondylitis [Unknown]

NARRATIVE: CASE EVENT DATE: 2008
